FAERS Safety Report 17178207 (Version 1)
Quarter: 2019Q4

REPORT INFORMATION
  Report Type: Spontaneous
  Country: CN (occurrence: CN)
  Receive Date: 20191219
  Receipt Date: 20191219
  Transmission Date: 20200122
  Serious: Yes (Life-Threatening)
  Sender: FDA-Public Use
  Company Number: CN-ALKEM LABORATORIES LIMITED-CN-ALKEM-2019-08666

PATIENT
  Age: 73 Year
  Sex: Female

DRUGS (4)
  1. CAPECITABINE. [Suspect]
     Active Substance: CAPECITABINE
     Indication: METASTATIC NEOPLASM
     Dosage: 1500 MILLIGRAM, BID, ON DAYS 1-14, DURING THE 1ST, 2ND, 3RD AND 4TH CYCLES
     Route: 048
     Dates: start: 201704
  2. EXEMESTANE. [Concomitant]
     Active Substance: EXEMESTANE
     Indication: ENDOCRINE DISORDER
     Dosage: 25 MILLIGRAM, QD
     Route: 048
     Dates: start: 201503
  3. DOCETAXEL. [Concomitant]
     Active Substance: DOCETAXEL
     Indication: METASTATIC NEOPLASM
     Dosage: 120 MILLIGRAM, ON DAY 1
     Route: 042
     Dates: start: 201704, end: 20170810
  4. CAPECITABINE. [Suspect]
     Active Substance: CAPECITABINE
     Dosage: 1000 MILLIGRAM, BID, ON DAYS 1-14, DURING THE 5TH AND 6TH CYCLES
     Route: 048
     Dates: end: 20170810

REACTIONS (2)
  - Fingerprint loss [Recovering/Resolving]
  - Palmar-plantar erythrodysaesthesia syndrome [Recovering/Resolving]
